FAERS Safety Report 26040258 (Version 1)
Quarter: 2025Q4

REPORT INFORMATION
  Report Type: Spontaneous
  Country: GB (occurrence: GB)
  Receive Date: 20251113
  Receipt Date: 20251113
  Transmission Date: 20260118
  Serious: Yes (Hospitalization, Other)
  Sender: RANBAXY
  Company Number: GB-MHRA-MED-202510290617489840-WZMDF

PATIENT
  Age: 32 Year
  Sex: Male
  Weight: 67 kg

DRUGS (1)
  1. CIPROFLOXACIN [Suspect]
     Active Substance: CIPROFLOXACIN
     Indication: Gastrointestinal pain
     Dosage: 1000 MILLIGRAM, DAILY, 500 * 2 PER DAY
     Route: 065
     Dates: start: 20251018

REACTIONS (7)
  - Palpitations [Recovered/Resolved with Sequelae]
  - Dizziness [Recovering/Resolving]
  - Hypoaesthesia [Recovering/Resolving]
  - Muscle spasms [Recovering/Resolving]
  - Muscular weakness [Recovering/Resolving]
  - Palpitations [Recovered/Resolved]
  - Balance disorder [Recovering/Resolving]

NARRATIVE: CASE EVENT DATE: 20251022
